FAERS Safety Report 8964797 (Version 2)
Quarter: 2013Q1

REPORT INFORMATION
  Report Type: Report from Study
  Country: FR (occurrence: FR)
  Receive Date: 20121213
  Receipt Date: 20130118
  Transmission Date: 20140127
  Serious: Yes (Death, Other)
  Sender: FDA-Public Use
  Company Number: FR-ROCHE-1166877

PATIENT
  Age: 71 Year
  Sex: Male

DRUGS (7)
  1. RITUXIMAB [Suspect]
     Indication: CHRONIC LYMPHOCYTIC LEUKAEMIA
     Route: 041
     Dates: start: 20120314, end: 20120711
  2. RITUXIMAB [Suspect]
     Route: 065
     Dates: start: 20120308
  3. FLUDARA [Concomitant]
     Route: 002
     Dates: start: 20120711, end: 20120713
  4. ENDOXAN [Concomitant]
     Route: 002
     Dates: start: 20120711, end: 20120713
  5. METHYLPREDNISOLONE [Concomitant]
     Route: 065
     Dates: start: 20120711, end: 20120711
  6. PERFALGAN [Concomitant]
     Route: 065
     Dates: start: 20120711, end: 20120711
  7. POLARAMINE [Concomitant]
     Route: 065
     Dates: start: 20120711, end: 20120711

REACTIONS (1)
  - Oesophageal adenocarcinoma [Fatal]
